FAERS Safety Report 7272062-8 (Version None)
Quarter: 2011Q1

REPORT INFORMATION
  Report Type: 
  Country: None (occurrence: None)
  Receive Date: 20110131
  Receipt Date: 20110131
  Transmission Date: 20110831
  Serious: Yes (Life-Threatening)
  Sender: FDA-Public Use
  Company Number: None

PATIENT
  Age: 68 Year
  Sex: Male
  Weight: 81.6475 kg

DRUGS (1)
  1. LISINOPRIL [Suspect]
     Indication: DRUG THERAPY
     Dosage: ONE DAILY
     Dates: start: 20090510, end: 20110126

REACTIONS (3)
  - SWELLING FACE [None]
  - LIP SWELLING [None]
  - LYMPHADENOPATHY [None]
